FAERS Safety Report 15453510 (Version 2)
Quarter: 2018Q4

REPORT INFORMATION
  Report Type: Report from Study
  Country: ZA (occurrence: ZA)
  Receive Date: 20181001
  Receipt Date: 20181017
  Transmission Date: 20190204
  Serious: Yes (Hospitalization, Other)
  Sender: FDA-Public Use
  Company Number: ZA-SAKK-2018SA244718AA

PATIENT
  Age: 55 Year
  Sex: Female

DRUGS (5)
  1. INSULIN GLARGINE [Suspect]
     Active Substance: INSULIN GLARGINE
     Indication: TYPE 2 DIABETES MELLITUS
     Dosage: UNK UNK, BID, 20 IN BREAKFAST AND 30 IN SUPPER
     Dates: start: 20180201
  2. NOVORAPID [Concomitant]
     Active Substance: INSULIN ASPART
     Dosage: UNK
  3. INSULIN GLARGINE [Suspect]
     Active Substance: INSULIN GLARGINE
     Indication: ADJUVANT THERAPY
     Dosage: 20 U, QD (AT NIGHT)
     Dates: start: 20080911
  4. INSULIN GLARGINE [Suspect]
     Active Substance: INSULIN GLARGINE
     Dosage: UNK
     Dates: start: 20180601
  5. INSULIN GLARGINE [Suspect]
     Active Substance: INSULIN GLARGINE
     Dosage: 30 U, QD (AT NIGHT)
     Dates: start: 20080201

REACTIONS (6)
  - Dizziness [Not Recovered/Not Resolved]
  - Headache [Not Recovered/Not Resolved]
  - Muscle spasms [Unknown]
  - Hyperglycaemia [Unknown]
  - Off label use [Unknown]
  - Pneumonia [Recovered/Resolved]

NARRATIVE: CASE EVENT DATE: 20180701
